FAERS Safety Report 9500411 (Version 1)
Quarter: 2013Q3

REPORT INFORMATION
  Report Type: Spontaneous
  Country: US (occurrence: None)
  Receive Date: 20130903
  Receipt Date: 20130903
  Transmission Date: 20140515
  Serious: Yes (Other)
  Sender: FDA-Public Use
  Company Number: 116044

PATIENT
  Sex: Female

DRUGS (1)
  1. TERBUTALINE SULFATE [Suspect]
     Dosage: SUBCUTANEOUS INJECTION ADMINISTERED ONCE
     Route: 058
     Dates: start: 20110406

REACTIONS (4)
  - Bradycardia [None]
  - Hypotension [None]
  - Caesarean section [None]
  - Exposure during pregnancy [None]
